FAERS Safety Report 7638451-4 (Version None)
Quarter: 2011Q3

REPORT INFORMATION
  Report Type: 
  Country: None (occurrence: None)
  Receive Date: 20110727
  Receipt Date: 20110707
  Transmission Date: 20111222
  Serious: No
  Sender: FDA-Public Use
  Company Number: US-B.I. PHARMACEUTICALS,INC./RIDGEFIELD-2011-BP-17342BP

PATIENT
  Sex: Female

DRUGS (1)
  1. MIRAPEX [Suspect]

REACTIONS (5)
  - HALLUCINATION, AUDITORY [None]
  - VOMITING [None]
  - HEADACHE [None]
  - MOBILITY DECREASED [None]
  - FEELING ABNORMAL [None]
